FAERS Safety Report 6201356-X (Version None)
Quarter: 2009Q2

REPORT INFORMATION
  Report Type: 
  Country: None (occurrence: None)
  Receive Date: 20090526
  Receipt Date: 20090519
  Transmission Date: 20091009
  Serious: Yes (Other)
  Sender: FDA-Public Use
  Company Number: PHHY2009GB19749

PATIENT
  Age: 59 Year
  Sex: Male
  Weight: 85.8 kg

DRUGS (6)
  1. CARBAMAZEPINE [Interacting]
     Indication: MENTAL DISORDER
     Dosage: 300 MG, BID
     Route: 048
  2. EPIRUBICIN [Interacting]
     Indication: GASTRIC CANCER
     Dosage: 100MG ONCE EVERY THREE WEEKS
     Route: 042
     Dates: start: 20090218
  3. CISPLATIN [Interacting]
     Indication: GASTRIC CANCER
     Dosage: 120MG ONCE EVERY THREE WEEKS
     Route: 042
     Dates: start: 20090218
  4. XELODA [Interacting]
     Indication: GASTRIC CANCER
     Dosage: 1300 MG, BID
     Route: 048
     Dates: start: 20090218, end: 20090311
  5. OLANZAPINE [Suspect]
     Indication: MENTAL DISORDER
     Dosage: 10 MG DAILY
     Route: 048
  6. PERPHENAZINE [Suspect]
     Indication: MENTAL DISORDER
     Dosage: 4 MG, BID
     Route: 048

REACTIONS (3)
  - DRUG INEFFECTIVE [None]
  - DRUG INTERACTION [None]
  - HALLUCINATION, VISUAL [None]
